FAERS Safety Report 21530861 (Version 1)
Quarter: 2022Q4

REPORT INFORMATION
  Report Type: Spontaneous
  Country: US (occurrence: None)
  Receive Date: 20221028
  Receipt Date: 20221028
  Transmission Date: 20230112
  Serious: No
  Sender: FDA-Public Use
  Company Number: None

PATIENT
  Age: 62 Year
  Sex: Male

DRUGS (1)
  1. GABAPENTIN [Suspect]
     Active Substance: GABAPENTIN
     Indication: Pain
     Dosage: 200 MG TID PO
     Route: 048
     Dates: start: 20220830, end: 20220830

REACTIONS (8)
  - Throat tightness [None]
  - Rash pruritic [None]
  - Rash erythematous [None]
  - Tremor [None]
  - Dyspnoea [None]
  - Cough [None]
  - Sputum increased [None]
  - Anxiety [None]

NARRATIVE: CASE EVENT DATE: 20220831
